FAERS Safety Report 18953273 (Version 2)
Quarter: 2021Q2

REPORT INFORMATION
  Report Type: Other
  Country: JP (occurrence: JP)
  Receive Date: 20210301
  Receipt Date: 20210506
  Transmission Date: 20210717
  Serious: Yes (Hospitalization, Other)
  Sender: FDA-Public Use
  Company Number: JP-APOTEX-2021AP003817

PATIENT
  Age: 52 Year
  Sex: Female
  Weight: 89 kg

DRUGS (8)
  1. ABILIFY [Suspect]
     Active Substance: ARIPIPRAZOLE
     Indication: IRRITABILITY
     Dosage: 3 MILLILITER
     Route: 048
     Dates: start: 20170901, end: 201809
  2. ABILIFY [Suspect]
     Active Substance: ARIPIPRAZOLE
     Indication: APATHY
     Dosage: 3 MILLIGRAM
     Route: 048
     Dates: start: 20170414, end: 201809
  3. FLUNITRAZEPAM [Concomitant]
     Active Substance: FLUNITRAZEPAM
     Indication: INSOMNIA
     Dosage: 2 MILLIGRAM
     Route: 048
     Dates: start: 20150714, end: 201809
  4. DEPAS [ETIZOLAM] [Concomitant]
     Active Substance: ETIZOLAM
     Indication: ANXIETY
     Dosage: 3 MILLIGRAM
     Route: 048
     Dates: start: 201407, end: 201809
  5. GASMOTIN [Concomitant]
     Active Substance: MOSAPRIDE CITRATE
     Indication: ABDOMINAL PAIN UPPER
     Dosage: 3 MILLIGRAM
     Route: 048
     Dates: start: 20150714, end: 201809
  6. TRAZODONE [Concomitant]
     Active Substance: TRAZODONE HYDROCHLORIDE
     Indication: INSOMNIA
     Dosage: 25 MILLIGRAM
     Route: 048
     Dates: start: 20160701, end: 201809
  7. PAXIL CR [Suspect]
     Active Substance: PAROXETINE HYDROCHLORIDE
     Indication: PRODUCT USED FOR UNKNOWN INDICATION
     Dosage: 25 MILLIGRAM, QD
     Route: 048
     Dates: start: 201407, end: 201809
  8. PAXIL CR [Suspect]
     Active Substance: PAROXETINE HYDROCHLORIDE
     Indication: DEPRESSIVE SYMPTOM

REACTIONS (18)
  - Neuroleptic malignant syndrome [Recovered/Resolved]
  - Mood swings [Unknown]
  - Tinnitus [Unknown]
  - Musculoskeletal stiffness [Unknown]
  - Anxiety [Unknown]
  - Hepatic function abnormal [Unknown]
  - Pneumonia aspiration [Unknown]
  - Deep vein thrombosis [Unknown]
  - Pyrexia [Unknown]
  - Headache [Unknown]
  - Pulmonary embolism [Unknown]
  - Motor dysfunction [Unknown]
  - Abdominal pain [Unknown]
  - Drug hypersensitivity [Unknown]
  - Suicidal ideation [Unknown]
  - Altered state of consciousness [Unknown]
  - Dizziness [Unknown]
  - Hyperhidrosis [Unknown]

NARRATIVE: CASE EVENT DATE: 20180916
